FAERS Safety Report 5022127-6 (Version None)
Quarter: 2006Q2

REPORT INFORMATION
  Report Type: 
  Country: None (occurrence: None)
  Receive Date: 20060605
  Receipt Date: 20060517
  Transmission Date: 20061013
  Serious: Yes (Hospitalization)
  Sender: FDA-Public Use
  Company Number: S06-SWI-02005-01

PATIENT
  Age: 76 Year
  Sex: Female

DRUGS (7)
  1. CITALOPRAM HYDROBROMIDE [Suspect]
     Dosage: 20 MG QD PO
     Route: 048
     Dates: end: 20060222
  2. MORPHINE [Suspect]
     Indication: PAIN
     Dosage: 16 MG QD SC
     Route: 058
     Dates: start: 20060220, end: 20060221
  3. TRAMADOL HCL [Suspect]
     Indication: PAIN
     Dosage: 400 MG QD PO
     Route: 048
     Dates: start: 20060220, end: 20060222
  4. LEVOTHYROXINE SODIUM [Concomitant]
  5. CIBACEN                   (BENZAEPRIL HYDROCHLORIDE) [Concomitant]
  6. ZOLPIDEM TARTRATE [Concomitant]
  7. HEPARIN [Concomitant]

REACTIONS (16)
  - BLOOD UREA DECREASED [None]
  - CONFUSIONAL STATE [None]
  - DEPRESSED LEVEL OF CONSCIOUSNESS [None]
  - FOOT AMPUTATION [None]
  - GENERAL PHYSICAL HEALTH DETERIORATION [None]
  - HYPERREFLEXIA [None]
  - HYPOTENSION [None]
  - METABOLIC ACIDOSIS [None]
  - MIOSIS [None]
  - PAIN IN EXTREMITY [None]
  - PYREXIA [None]
  - RENAL FAILURE [None]
  - RESPIRATORY ACIDOSIS [None]
  - RHABDOMYOLYSIS [None]
  - SEROTONIN SYNDROME [None]
  - UNRESPONSIVE TO VERBAL STIMULI [None]
